FAERS Safety Report 13779034 (Version 1)
Quarter: 2017Q3

REPORT INFORMATION
  Report Type: Spontaneous
  Country: US (occurrence: US)
  Receive Date: 20170721
  Receipt Date: 20170721
  Transmission Date: 20171127
  Serious: No
  Sender: FDA-Public Use
  Company Number: US-PFIZER INC-2017315742

PATIENT
  Sex: Female

DRUGS (1)
  1. CYTOMEL [Suspect]
     Active Substance: LIOTHYRONINE SODIUM
     Dosage: UNK (DISSOLVE A 5MCG TABLET IN WATER AND THE CONSUME 1/2 THE AMOUNT TO EQUAL A 2.5MCG DOSE.)

REACTIONS (2)
  - Drug intolerance [Unknown]
  - Drug prescribing error [Unknown]
